FAERS Safety Report 4465097-1 (Version None)
Quarter: 2004Q3

REPORT INFORMATION
  Report Type: 
  Country: None (occurrence: None)
  Receive Date: 20040928
  Receipt Date: 20040928
  Transmission Date: 20050211
  Serious: Yes (Hospitalization)
  Sender: FDA-Public Use
  Company Number: None

PATIENT
  Sex: Male

DRUGS (10)
  1. DIGOXIN [Suspect]
     Dosage: 0.125 MG  DAILY  ORAL
     Route: 048
  2. IPRATROPIUM BROMIDE [Concomitant]
  3. ALBUTEROL [Concomitant]
  4. MYLANTA II [Concomitant]
  5. LACTULOSE [Concomitant]
  6. TRAZODONE HCL [Concomitant]
  7. MIRTAZAPINE [Concomitant]
  8. MEGESTROL [Concomitant]
  9. LEVOTHYROXINE SODIUM [Concomitant]
  10. ASPIRIN [Concomitant]

REACTIONS (1)
  - LETHARGY [None]
